FAERS Safety Report 9219310 (Version 2)
Quarter: 2013Q3

REPORT INFORMATION
  Report Type: Report from Study
  Country: US (occurrence: US)
  Receive Date: 20130409
  Receipt Date: 20130719
  Transmission Date: 20140515
  Serious: Yes (Other)
  Sender: FDA-Public Use
  Company Number: US-ABBOTT-13P-163-1071473-00

PATIENT
  Age: 58 Year
  Sex: Male

DRUGS (3)
  1. HUMIRA [Suspect]
     Indication: PSORIASIS
     Dates: start: 2009
  2. EFFEXOR [Concomitant]
     Indication: DEPRESSION
  3. ABILIFY [Concomitant]
     Indication: PRODUCT USED FOR UNKNOWN INDICATION

REACTIONS (5)
  - Intervertebral disc protrusion [Unknown]
  - Lumbar spinal stenosis [Unknown]
  - Rotator cuff repair [Unknown]
  - Shoulder arthroplasty [Unknown]
  - Abdominal distension [Not Recovered/Not Resolved]
